FAERS Safety Report 12136961 (Version 7)
Quarter: 2016Q3

REPORT INFORMATION
  Report Type: Report from Study
  Country: US (occurrence: US)
  Receive Date: 20160302
  Receipt Date: 20160921
  Transmission Date: 20161109
  Serious: Yes (Hospitalization, Other)
  Sender: FDA-Public Use
  Company Number: US-BAYER-2015-454187

PATIENT
  Age: 62 Year
  Sex: Female
  Weight: 145.13 kg

DRUGS (10)
  1. ADEMPAS [Suspect]
     Active Substance: RIOCIGUAT
     Indication: PULMONARY HYPERTENSION
     Dosage: UNK
     Route: 048
     Dates: start: 20151102
  2. ADEMPAS [Suspect]
     Active Substance: RIOCIGUAT
     Indication: PULMONARY HYPERTENSION
     Dosage: 2.5 MG, TID
     Route: 048
  3. ADEMPAS [Suspect]
     Active Substance: RIOCIGUAT
     Indication: PULMONARY HYPERTENSION
     Dosage: 1 MG, TID (LAST SHIPPED ON 06-OCT-2015)
     Route: 048
  4. XARELTO [Suspect]
     Active Substance: RIVAROXABAN
  5. ADEMPAS [Suspect]
     Active Substance: RIOCIGUAT
     Indication: PULMONARY HYPERTENSION
     Dosage: 2.5 MG, TID
  6. AMLODIPINE [Concomitant]
     Active Substance: AMLODIPINE BESYLATE
  7. ADEMPAS [Suspect]
     Active Substance: RIOCIGUAT
     Indication: PULMONARY HYPERTENSION
     Dosage: 2 MG, TID
     Route: 048
  8. ADEMPAS [Suspect]
     Active Substance: RIOCIGUAT
     Indication: PULMONARY HYPERTENSION
     Dosage: 2.5 MG, TID
     Route: 048
  9. ADEMPAS [Suspect]
     Active Substance: RIOCIGUAT
     Indication: PULMONARY HYPERTENSION
     Dosage: 2.5 MG, TID
     Route: 048
  10. ADEMPAS [Suspect]
     Active Substance: RIOCIGUAT
     Indication: PULMONARY HYPERTENSION
     Dosage: 2.5 MG, TID
     Route: 048

REACTIONS (25)
  - Decreased appetite [Unknown]
  - Hypotension [None]
  - Chest pain [Unknown]
  - Fluid retention [Unknown]
  - Drug dose omission [None]
  - Diabetic ketoacidosis [Unknown]
  - Anaemia [None]
  - Oxygen saturation decreased [None]
  - Loss of consciousness [Unknown]
  - Abasia [None]
  - Intervertebral disc protrusion [None]
  - Headache [Not Recovered/Not Resolved]
  - Abnormal loss of weight [None]
  - Renal failure [Unknown]
  - Fall [None]
  - Osteomyelitis [None]
  - Headache [None]
  - Dizziness [None]
  - Nausea [None]
  - Dizziness [Recovered/Resolved]
  - Back pain [None]
  - Constipation [None]
  - Dyspnoea [Unknown]
  - Anaemia [Unknown]
  - Diarrhoea [None]
